FAERS Safety Report 16009381 (Version 3)
Quarter: 2019Q2

REPORT INFORMATION
  Report Type: Spontaneous
  Country: TH (occurrence: TH)
  Receive Date: 20190226
  Receipt Date: 20190428
  Transmission Date: 20190711
  Serious: Yes (Other)
  Sender: FDA-Public Use
  Company Number: TH-009507513-1902THA007970

PATIENT
  Age: 76 Year
  Sex: Female

DRUGS (10)
  1. POSACONAZOLE [Suspect]
     Active Substance: POSACONAZOLE
     Indication: DISORDER OF ORBIT
  2. AMBISOME [Concomitant]
     Active Substance: AMPHOTERICIN B
     Indication: ANTIFUNGAL TREATMENT
     Dosage: 6 MILLIGRAM/KILOGRAM
     Route: 042
     Dates: start: 20150311, end: 20150415
  3. CASPOFUNGIN ACETATE. [Concomitant]
     Active Substance: CASPOFUNGIN ACETATE
     Indication: SALVAGE THERAPY
  4. POSACONAZOLE [Suspect]
     Active Substance: POSACONAZOLE
     Indication: SINUSITIS FUNGAL
     Dosage: 10 MILLILITER, BID
     Route: 048
     Dates: start: 20141103, end: 20150320
  5. POSACONAZOLE [Suspect]
     Active Substance: POSACONAZOLE
     Indication: MUCORMYCOSIS
     Dosage: 10 MILLILITER, BID
     Route: 048
     Dates: start: 20150421, end: 20150506
  6. AMBISOME [Concomitant]
     Active Substance: AMPHOTERICIN B
     Indication: MUCORMYCOSIS
  7. CASPOFUNGIN ACETATE. [Concomitant]
     Active Substance: CASPOFUNGIN ACETATE
     Indication: ANTIFUNGAL TREATMENT
     Dosage: 70 MILLIGRAM
     Route: 042
     Dates: start: 20150311, end: 20150415
  8. DEFERIPRONE [Suspect]
     Active Substance: DEFERIPRONE
     Indication: ANTIFUNGAL TREATMENT
     Dosage: UNK
  9. AMBISOME [Concomitant]
     Active Substance: AMPHOTERICIN B
     Indication: SALVAGE THERAPY
  10. CASPOFUNGIN ACETATE. [Concomitant]
     Active Substance: CASPOFUNGIN ACETATE
     Indication: MUCORMYCOSIS

REACTIONS (2)
  - Drug ineffective [Unknown]
  - Mucormycosis [Recovered/Resolved]

NARRATIVE: CASE EVENT DATE: 20141014
